FAERS Safety Report 15233183 (Version 2)
Quarter: 2019Q3

REPORT INFORMATION
  Report Type: Spontaneous
  Country: US (occurrence: US)
  Receive Date: 20180802
  Receipt Date: 20190715
  Transmission Date: 20191004
  Serious: No
  Sender: FDA-Public Use
  Company Number: US-PFIZER INC-2018307566

PATIENT
  Age: 73 Year
  Sex: Male

DRUGS (1)
  1. GENOTROPIN MQ [Suspect]
     Active Substance: SOMATROPIN
     Dosage: 0.4 MG, DAILY
     Dates: end: 201904

REACTIONS (3)
  - Back pain [Unknown]
  - Blood glucose increased [Unknown]
  - Loss of personal independence in daily activities [Unknown]
